FAERS Safety Report 18412479 (Version 2)
Quarter: 2020Q4

REPORT INFORMATION
  Report Type: Spontaneous
  Country: ES (occurrence: ES)
  Receive Date: 20201022
  Receipt Date: 20201101
  Transmission Date: 20210114
  Serious: Yes (Other)
  Sender: FDA-Public Use
  Company Number: ES-SAMSUNG BIOEPIS-SB-2020-32158

PATIENT
  Age: 8 Year
  Sex: Female

DRUGS (1)
  1. ADALIMUMAB [Suspect]
     Active Substance: ADALIMUMAB
     Indication: PSORIASIS
     Dosage: UNKNOWN
     Route: 058

REACTIONS (2)
  - Autoimmune haemolytic anaemia [Recovered/Resolved]
  - Haemolytic anaemia [Recovering/Resolving]
